FAERS Safety Report 22071579 (Version 1)
Quarter: 2023Q1

REPORT INFORMATION
  Report Type: Spontaneous
  Country: SE (occurrence: SE)
  Receive Date: 20230307
  Receipt Date: 20230307
  Transmission Date: 20230418
  Serious: Yes (Hospitalization)
  Sender: FDA-Public Use
  Company Number: None

PATIENT
  Age: 16 Year
  Sex: Female

DRUGS (5)
  1. VENLAFAXINE [Suspect]
     Active Substance: VENLAFAXINE HYDROCHLORIDE
     Indication: Product used for unknown indication
     Dosage: UNCLEAR AMOUNT (TOTAL)
     Route: 048
     Dates: start: 20220428, end: 20220428
  2. CHOLECALCIFEROL [Suspect]
     Active Substance: CHOLECALCIFEROL
     Indication: Product used for unknown indication
     Dosage: UNCLEAR AMOUNT (TOTAL)
     Route: 048
     Dates: start: 20220428, end: 20220428
  3. MELATONIN [Suspect]
     Active Substance: MELATONIN
     Indication: Product used for unknown indication
     Dosage: UNCLEAR AMOUNT (TOTAL)
     Route: 048
     Dates: start: 20220428, end: 20220428
  4. PROMETHAZINE HYDROCHLORIDE\THIOUREA [Suspect]
     Active Substance: PROMETHAZINE HYDROCHLORIDE\THIOUREA
     Indication: Product used for unknown indication
     Dosage: UNCLEAR AMOUNT (TOTAL)
     Route: 048
     Dates: start: 20220428, end: 20220428
  5. VENLAFAXINE [Suspect]
     Active Substance: VENLAFAXINE HYDROCHLORIDE
     Indication: Product used for unknown indication
     Dosage: VENLAFAXINE 80 150 MG PROLONGED-RELEASE TABLETS (TOTAL)
     Route: 048
     Dates: start: 20220428, end: 20220428

REACTIONS (4)
  - Ventricular hypokinesia [Unknown]
  - Suicide attempt [Unknown]
  - Seizure [Unknown]
  - Intentional overdose [Unknown]

NARRATIVE: CASE EVENT DATE: 20220428
